FAERS Safety Report 20708741 (Version 1)
Quarter: 2022Q2

REPORT INFORMATION
  Report Type: Spontaneous
  Country: US (occurrence: None)
  Receive Date: 20220414
  Receipt Date: 20220414
  Transmission Date: 20220721
  Serious: No
  Sender: FDA-Public Use
  Company Number: US-ARIS GLOBAL-VER202105-001229

PATIENT
  Age: 74 Year
  Sex: Female
  Weight: 70.31 kg

DRUGS (1)
  1. NYSTATIN [Suspect]
     Active Substance: NYSTATIN
     Indication: Candida infection
     Dosage: 0.4 MG - 0.6 MG (SWISH AND SPIT)

REACTIONS (3)
  - Candida infection [Not Recovered/Not Resolved]
  - Drug ineffective [Unknown]
  - Product prescribing issue [Unknown]
